FAERS Safety Report 7105101-5 (Version None)
Quarter: 2010Q4

REPORT INFORMATION
  Report Type: 
  Country: None (occurrence: None)
  Receive Date: 20101109
  Receipt Date: 20101109
  Transmission Date: 20110411
  Serious: Yes (Other)
  Sender: FDA-Public Use
  Company Number: 019492

PATIENT
  Sex: Male
  Weight: 50 kg

DRUGS (1)
  1. KEPPRA [Suspect]
     Indication: EPILEPSY
     Dosage: (500 MG BID ORAL)
     Route: 048
     Dates: start: 20100728, end: 20100930

REACTIONS (4)
  - DERMATITIS BULLOUS [None]
  - ECZEMA [None]
  - SKIN DISORDER [None]
  - SKIN EXFOLIATION [None]
